FAERS Safety Report 6462514-2 (Version None)
Quarter: 2009Q4

REPORT INFORMATION
  Report Type: 
  Country: None (occurrence: None)
  Receive Date: 20091130
  Receipt Date: 20091026
  Transmission Date: 20100525
  Serious: No
  Sender: FDA-Public Use
  Company Number: US-BAYER-200916083BCC

PATIENT
  Age: 66 Year
  Sex: Male
  Weight: 78 kg

DRUGS (5)
  1. ALEVE [Suspect]
     Indication: ARTHRALGIA
     Dosage: TOTAL DAILY DOSE: 440 MG  UNIT DOSE: 220 MG
     Route: 048
     Dates: start: 20091024
  2. ALEVE [Suspect]
     Dosage: THE CONSUMER STATED THAT HE TOOK A TOTAL OF 12 TABLET OVER A TWO AND A HALF DAY
     Route: 048
  3. VICODIN [Concomitant]
  4. GENERIC VACTRIM-DS [Concomitant]
     Dosage: SMZ/TMPDS 800-160
     Route: 048
  5. CEPHALEXIN [Concomitant]
     Dosage: GENERIC FOR KEFLEX
     Route: 065

REACTIONS (1)
  - CONSTIPATION [None]
